FAERS Safety Report 7953715-2 (Version None)
Quarter: 2011Q4

REPORT INFORMATION
  Report Type: 
  Country: None (occurrence: None)
  Receive Date: 20111202
  Receipt Date: 20111125
  Transmission Date: 20120403
  Serious: Yes (Hospitalization, Other)
  Sender: FDA-Public Use
  Company Number: IT-JNJFOC-20111105799

PATIENT
  Sex: Male

DRUGS (5)
  1. LORAZEPAM [Concomitant]
     Indication: PRODUCT USED FOR UNKNOWN INDICATION
     Route: 048
     Dates: start: 20110903, end: 20111109
  2. RISPERDAL [Suspect]
     Dosage: PATIENT TOOK THREE 3 MG TABLETS INSTEAD OF TWO TABLETS
     Route: 048
     Dates: start: 20111105, end: 20111105
  3. CLOPIXOL DEPOT [Suspect]
     Indication: AGITATION
     Route: 030
     Dates: start: 20110903, end: 20111031
  4. DELORAZEPAM [Concomitant]
     Indication: PRODUCT USED FOR UNKNOWN INDICATION
     Route: 048
     Dates: start: 20110903, end: 20111109
  5. RISPERDAL [Suspect]
     Indication: SCHIZOPHRENIA
     Dosage: TWO 3 MG TABLETS
     Route: 048
     Dates: start: 20110903

REACTIONS (2)
  - PRIAPISM [None]
  - INCORRECT DOSE ADMINISTERED [None]
